FAERS Safety Report 17967177 (Version 1)
Quarter: 2020Q3

REPORT INFORMATION
  Report Type: Other
  Country: IT (occurrence: IT)
  Receive Date: 20200701
  Receipt Date: 20200701
  Transmission Date: 20201103
  Serious: Yes (Hospitalization, Other)
  Sender: FDA-Public Use
  Company Number: IT-KNIGHT THERAPEUTICS (USA) INC.-2086920

PATIENT
  Age: 65 Year
  Sex: Male

DRUGS (1)
  1. IMPAVIDO [Suspect]
     Active Substance: MILTEFOSINE
     Indication: MUCOCUTANEOUS LEISHMANIASIS
     Route: 048
     Dates: start: 2016, end: 2018

REACTIONS (3)
  - Disease recurrence [Recovered/Resolved]
  - Off label use [Recovered/Resolved]
  - Renal impairment [Recovered/Resolved]
